FAERS Safety Report 18985924 (Version 1)
Quarter: 2021Q1

REPORT INFORMATION
  Report Type: Spontaneous
  Country: US (occurrence: US)
  Receive Date: 20210308
  Receipt Date: 20210308
  Transmission Date: 20210420
  Serious: No
  Sender: FDA-Public Use
  Company Number: None

PATIENT
  Age: 14 Year
  Sex: Male
  Weight: 51.75 kg

DRUGS (3)
  1. METHYLPHENIDATE ER 54MG [Suspect]
     Active Substance: METHYLPHENIDATE
     Indication: ATTENTION DEFICIT HYPERACTIVITY DISORDER
     Dosage: ?          QUANTITY:90 CAPSULE(S);?
     Route: 048
     Dates: start: 20210225, end: 20210308
  2. CLARITIN [Concomitant]
     Active Substance: LORATADINE
  3. LEXAPRO [Concomitant]
     Active Substance: ESCITALOPRAM OXALATE

REACTIONS (7)
  - Drug effect less than expected [None]
  - Disturbance in attention [None]
  - Irritability [None]
  - Memory impairment [None]
  - Product substitution issue [None]
  - Anxiety [None]
  - Daydreaming [None]

NARRATIVE: CASE EVENT DATE: 20210225
